FAERS Safety Report 20975633 (Version 2)
Quarter: 2022Q2

REPORT INFORMATION
  Report Type: Report from Study
  Country: US (occurrence: US)
  Receive Date: 20220617
  Receipt Date: 20220620
  Transmission Date: 20220720
  Serious: Yes (Death)
  Sender: FDA-Public Use
  Company Number: US-PFIZER INC-202200840745

PATIENT

DRUGS (2)
  1. CYTARABINE [Suspect]
     Active Substance: CYTARABINE
     Indication: Leukaemia
     Dosage: 100 MG/M2, 1X/DAY
  2. MITOXANTRONE HYDROCHLORIDE [Suspect]
     Active Substance: MITOXANTRONE HYDROCHLORIDE
     Dosage: UNK(OVER 30 MINUTES IN 100 CC OF D5W ON DAYS 1,2, AND 3)

REACTIONS (2)
  - Haemorrhage intracranial [Fatal]
  - Pancytopenia [Fatal]
